FAERS Safety Report 10519098 (Version 1)
Quarter: 2014Q4

REPORT INFORMATION
  Report Type: Spontaneous
  Country: US (occurrence: None)
  Receive Date: 20141014
  Receipt Date: 20141014
  Transmission Date: 20150528
  Serious: Yes (Other)
  Sender: FDA-Public Use
  Company Number: None

PATIENT
  Age: 47 Year
  Sex: Female
  Weight: 56.7 kg

DRUGS (1)
  1. METOPROLOL TARTRATE. [Suspect]
     Active Substance: METOPROLOL TARTRATE
     Dosage: 1 TABLET BID ORAL
     Route: 048
     Dates: start: 20140920, end: 20141013

REACTIONS (4)
  - Constipation [None]
  - Tinnitus [None]
  - Tremor [None]
  - Condition aggravated [None]

NARRATIVE: CASE EVENT DATE: 20140927
